FAERS Safety Report 13931349 (Version 1)
Quarter: 2017Q3

REPORT INFORMATION
  Report Type: Spontaneous
  Country: CO (occurrence: CO)
  Receive Date: 20170903
  Receipt Date: 20170903
  Transmission Date: 20171127
  Serious: Yes (Hospitalization, Other)
  Sender: FDA-Public Use
  Company Number: CO-AMGEN-COLSP2017133502

PATIENT
  Age: 52 Year
  Sex: Male

DRUGS (1)
  1. ENBREL [Suspect]
     Active Substance: ETANERCEPT
     Indication: RHEUMATOID ARTHRITIS
     Dosage: 50 MG,
     Route: 058

REACTIONS (7)
  - Urinary incontinence [Unknown]
  - Condition aggravated [Unknown]
  - Renal failure [Not Recovered/Not Resolved]
  - Dysuria [Unknown]
  - Weight decreased [Unknown]
  - Urinary tract infection [Unknown]
  - Tuberculosis [Unknown]

NARRATIVE: CASE EVENT DATE: 20170408
